FAERS Safety Report 15413887 (Version 4)
Quarter: 2019Q1

REPORT INFORMATION
  Report Type: Spontaneous
  Country: US (occurrence: US)
  Receive Date: 20180921
  Receipt Date: 20190314
  Transmission Date: 20190417
  Serious: Yes (Hospitalization, Other)
  Sender: FDA-Public Use
  Company Number: US-JNJFOC-20180922674

PATIENT
  Age: 48 Year
  Sex: Male

DRUGS (1)
  1. INVOKANA [Suspect]
     Active Substance: CANAGLIFLOZIN
     Indication: PRODUCT USED FOR UNKNOWN INDICATION
     Route: 048

REACTIONS (7)
  - Gangrene [Unknown]
  - Osteomyelitis [Unknown]
  - Skin ulcer [Unknown]
  - Toe amputation [Unknown]
  - Cellulitis [Unknown]
  - Foot amputation [Unknown]
  - Necrosis [Unknown]

NARRATIVE: CASE EVENT DATE: 20160608
